FAERS Safety Report 8793798 (Version 2)
Quarter: 2012Q4

REPORT INFORMATION
  Report Type: 
  Country: JP (occurrence: JP)
  Receive Date: 20120917
  Receipt Date: 20120921
  Transmission Date: 20130627
  Serious: Yes (Disabling)
  Sender: FDA-Public Use
  Company Number: PHHY2012JP075623

PATIENT
  Sex: Male

DRUGS (4)
  1. DIOVAN [Suspect]
     Indication: HYPERTENSION
     Dosage: 80 mg, daily
     Route: 048
     Dates: start: 20120713
  2. DEPAS [Concomitant]
     Route: 048
  3. RADICUT [Concomitant]
     Dates: start: 20120713
  4. BAYASPIRIN [Concomitant]
     Route: 048

REACTIONS (1)
  - Sudden hearing loss [Not Recovered/Not Resolved]
